FAERS Safety Report 23121684 (Version 1)
Quarter: 2023Q4

REPORT INFORMATION
  Report Type: Spontaneous
  Country: US (occurrence: US)
  Receive Date: 20231029
  Receipt Date: 20231029
  Transmission Date: 20240109
  Serious: No
  Sender: FDA-Public Use
  Company Number: US-BAUSCHBL-2023BNL010834

PATIENT
  Sex: Female

DRUGS (2)
  1. LUMIFY [Suspect]
     Active Substance: BRIMONIDINE TARTRATE
     Indication: Ocular hyperaemia
     Dosage: USED ONCE
     Route: 065
     Dates: start: 202309, end: 202309
  2. LUMIFY [Suspect]
     Active Substance: BRIMONIDINE TARTRATE

REACTIONS (3)
  - Ocular discomfort [Recovered/Resolved]
  - Eye irritation [Recovered/Resolved]
  - Eye pain [Recovered/Resolved]

NARRATIVE: CASE EVENT DATE: 20230901
